FAERS Safety Report 6893487-6 (Version None)
Quarter: 2010Q3

REPORT INFORMATION
  Report Type: 
  Country: None (occurrence: None)
  Receive Date: 20100731
  Receipt Date: 20090923
  Transmission Date: 20110219
  Serious: No
  Sender: FDA-Public Use
  Company Number: US-PFIZER INC-2009246201

PATIENT
  Sex: Male
  Weight: 72.562 kg

DRUGS (4)
  1. LIPITOR [Suspect]
     Indication: BLOOD CHOLESTEROL INCREASED
     Dosage: 10 MG, 1X/DAY
     Dates: start: 19990101, end: 20090706
  2. ZOLPIDEM [Concomitant]
     Dosage: UNK
  3. TRAZODONE [Concomitant]
     Dosage: UNK
  4. COENZYME Q10 [Concomitant]
     Dosage: UNK

REACTIONS (1)
  - NEUROPATHY PERIPHERAL [None]
